FAERS Safety Report 5014844-9 (Version None)
Quarter: 2006Q2

REPORT INFORMATION
  Report Type: 
  Country: None (occurrence: None)
  Receive Date: 20060419
  Receipt Date: 20051026
  Transmission Date: 20061013
  Serious: No
  Sender: FDA-Public Use
  Company Number: 2005-04167

PATIENT
  Age: 62 Year
  Sex: Female
  Weight: 71 kg

DRUGS (9)
  1. FERRLECIT [Suspect]
     Indication: IRON DEFICIENCY ANAEMIA
     Dosage: 250 MG, SINGLE, INTRAVENOUS
     Route: 042
     Dates: start: 20050808, end: 20050808
  2. FERRLECIT [Suspect]
     Indication: IRON DEFICIENCY ANAEMIA
     Dosage: 250 MG, SINGLE, INTRAVENOUS
     Route: 042
     Dates: start: 20050928, end: 20050928
  3. CARBIDOPA AND LEVODOPA [Concomitant]
  4. OMEPRAZOLE [Concomitant]
  5. FERROUS SULFATE TAB [Concomitant]
  6. GALENIC/AMLODIPINE/BENAZEPRIL HCL/ (AMLODIPINE) [Concomitant]
  7. ALLOPURINOL [Concomitant]
  8. ACETAMINOPHEN [Concomitant]
  9. DIPHENHYDRAMINE HCL [Concomitant]

REACTIONS (9)
  - ASTHENIA [None]
  - CHEST DISCOMFORT [None]
  - DIARRHOEA [None]
  - DYSPNOEA [None]
  - FLUSHING [None]
  - HYPOTENSION [None]
  - NAUSEA [None]
  - SYNCOPE [None]
  - VOMITING [None]
